FAERS Safety Report 9394812 (Version 1)
Quarter: 2013Q3

REPORT INFORMATION
  Report Type: Spontaneous
  Country: DE (occurrence: DE)
  Receive Date: 20130711
  Receipt Date: 20130711
  Transmission Date: 20140515
  Serious: Yes (Hospitalization, Other)
  Sender: FDA-Public Use
  Company Number: DE-JNJFOC-20130618386

PATIENT
  Sex: Male
  Weight: 2.98 kg

DRUGS (7)
  1. DUROGESIC SMAT [Suspect]
     Indication: INTERVERTEBRAL DISC PROTRUSION
     Dosage: PARENT DOSING
     Route: 064
  2. DIPIDOLOR [Suspect]
     Indication: INTERVERTEBRAL DISC PROTRUSION
     Route: 064
  3. DOLANTINA [Suspect]
     Indication: INTERVERTEBRAL DISC PROTRUSION
     Route: 064
  4. LYRICA [Suspect]
     Indication: INTERVERTEBRAL DISC PROTRUSION
     Route: 064
  5. CYMBALTA [Suspect]
     Indication: INTERVERTEBRAL DISC PROTRUSION
     Route: 064
  6. FOLSAN [Concomitant]
     Indication: PROPHYLAXIS OF NEURAL TUBE DEFECT
     Route: 064
  7. GLUCOCORTICOID [Concomitant]
     Indication: MATERNAL THERAPY TO ENHANCE FOETAL LUNG MATURITY
     Route: 064

REACTIONS (4)
  - Drug withdrawal syndrome neonatal [Recovered/Resolved]
  - Hyperbilirubinaemia neonatal [Recovered/Resolved]
  - Premature baby [Not Recovered/Not Resolved]
  - Foetal exposure during pregnancy [Recovered/Resolved]
